FAERS Safety Report 5628853-X (Version None)
Quarter: 2008Q1

REPORT INFORMATION
  Report Type: 
  Country: None (occurrence: None)
  Receive Date: 20080214
  Receipt Date: 20080129
  Transmission Date: 20080703
  Serious: Yes (Other)
  Sender: FDA-Public Use
  Company Number: US-1165086

PATIENT
  Sex: Female

DRUGS (5)
  1. VIGAMOX [Suspect]
     Indication: PROPHYLAXIS
     Dosage: (OPHTHALMIC)
     Route: 047
     Dates: start: 20060101, end: 20080101
  2. PREDNISOLONE ACETATE [Concomitant]
  3. REFRESH [Concomitant]
  4. MEDROXYPROGESTERONE [Concomitant]
  5. GENTEAL [Concomitant]

REACTIONS (2)
  - CORNEAL GRAFT REJECTION [None]
  - TREATMENT FAILURE [None]
